FAERS Safety Report 19182055 (Version 5)
Quarter: 2022Q2

REPORT INFORMATION
  Report Type: Report from Study
  Country: BR (occurrence: BR)
  Receive Date: 20210426
  Receipt Date: 20220623
  Transmission Date: 20220720
  Serious: No
  Sender: FDA-Public Use
  Company Number: BR-SHIRE-BR201502960

PATIENT
  Age: 11 Year
  Sex: Male
  Weight: 28 kg

DRUGS (25)
  1. IDURSULFASE [Suspect]
     Active Substance: IDURSULFASE
     Indication: Mucopolysaccharidosis II
     Dosage: 18 GRAM, 1/WEEK
     Route: 042
     Dates: start: 20150401
  2. IDURSULFASE [Suspect]
     Active Substance: IDURSULFASE
     Dosage: 6 MILLIGRAM, 1/WEEK
     Route: 042
     Dates: start: 20090306, end: 20180910
  3. IDURSULFASE [Suspect]
     Active Substance: IDURSULFASE
     Dosage: 0.35 MILLIGRAM/KILOGRAM, 1/WEEK
     Route: 042
     Dates: start: 20090828
  4. METHYLPREDNISOLONE [Concomitant]
     Active Substance: METHYLPREDNISOLONE
     Indication: Urticaria
     Dosage: UNK
     Route: 042
     Dates: start: 20090401, end: 20090401
  5. METHYLPREDNISOLONE [Concomitant]
     Active Substance: METHYLPREDNISOLONE
     Indication: Infusion related reaction
     Dosage: UNK
     Route: 042
     Dates: start: 20150401
  6. METHYLPREDNISOLONE [Concomitant]
     Active Substance: METHYLPREDNISOLONE
     Indication: Premedication
     Dosage: UNK
     Route: 042
     Dates: start: 20090408, end: 20090415
  7. METHYLPREDNISOLONE [Concomitant]
     Active Substance: METHYLPREDNISOLONE
     Dosage: UNK
     Route: 042
     Dates: start: 20090415, end: 20090415
  8. METHYLPREDNISOLONE [Concomitant]
     Active Substance: METHYLPREDNISOLONE
     Dosage: UNK
     Route: 042
     Dates: start: 20090422, end: 20090422
  9. METHYLPREDNISOLONE [Concomitant]
     Active Substance: METHYLPREDNISOLONE
     Dosage: UNK
     Route: 042
     Dates: start: 20090429, end: 20090429
  10. METHYLPREDNISOLONE [Concomitant]
     Active Substance: METHYLPREDNISOLONE
     Dosage: UNK
     Route: 048
     Dates: start: 20090422, end: 20110202
  11. DIPHENHYDRAMINE [Concomitant]
     Active Substance: DIPHENHYDRAMINE
     Indication: Premedication
     Dosage: UNK
     Route: 042
     Dates: start: 20090401, end: 20090401
  12. DIPHENHYDRAMINE [Concomitant]
     Active Substance: DIPHENHYDRAMINE
     Indication: Infusion related reaction
     Dosage: UNK
     Dates: start: 20090408, end: 20090415
  13. DIPHENHYDRAMINE [Concomitant]
     Active Substance: DIPHENHYDRAMINE
     Dosage: UNK
     Route: 042
     Dates: start: 20160204, end: 20160204
  14. HYDROXYZINE [Concomitant]
     Active Substance: HYDROXYZINE HYDROCHLORIDE
     Indication: Premedication
     Dosage: UNK
     Route: 048
     Dates: start: 20090408, end: 20120118
  15. ACETAMINOPHEN [Concomitant]
     Active Substance: ACETAMINOPHEN
     Indication: Pain
     Dosage: UNK
     Route: 048
     Dates: start: 20090408, end: 20090415
  16. PREDNISOLONE [Concomitant]
     Active Substance: PREDNISOLONE
     Indication: Premedication
     Dosage: UNK
     Route: 048
     Dates: start: 20090828, end: 20090828
  17. PREDNISOLONE [Concomitant]
     Active Substance: PREDNISOLONE
     Indication: Tracheitis
     Dosage: UNK
     Route: 048
     Dates: start: 20170419, end: 20170424
  18. DIPYRONE [Concomitant]
     Active Substance: DIPYRONE
     Indication: Pyrexia
     Dosage: UNK
     Route: 065
     Dates: start: 20120224, end: 20120224
  19. CARBAMAZEPINE [Concomitant]
     Active Substance: CARBAMAZEPINE
     Indication: Seizure
     Dosage: UNK
     Route: 048
     Dates: start: 20150601
  20. SPIRONOLACTONE [Concomitant]
     Active Substance: SPIRONOLACTONE
     Indication: Cardiomyopathy
     Dosage: UNK
     Route: 048
  21. DEXAMETHASONE [Concomitant]
     Active Substance: DEXAMETHASONE
     Indication: Product used for unknown indication
     Dosage: UNK
     Route: 048
     Dates: start: 2016
  22. HYDROXYZINE HYDROCHLORIDE [Concomitant]
     Active Substance: HYDROXYZINE HYDROCHLORIDE
  23. HYDROCORTISONE [Concomitant]
     Active Substance: HYDROCORTISONE
     Indication: Infusion related reaction
     Dosage: UNK
     Route: 042
     Dates: start: 20160204, end: 20160204
  24. CIPROFLOXACIN [Concomitant]
     Active Substance: CIPROFLOXACIN
     Indication: Tracheitis
     Dosage: UNK
     Route: 048
     Dates: start: 20170419, end: 20170703
  25. ALBUTEROL [Concomitant]
     Active Substance: ALBUTEROL
     Indication: Tracheitis
     Dosage: UNK
     Route: 048
     Dates: start: 20170419, end: 20170424

REACTIONS (8)
  - Hyperhidrosis [Recovered/Resolved]
  - Urticaria [Recovered/Resolved]
  - Oxygen saturation decreased [Recovered/Resolved]
  - Hyperaemia [Recovered/Resolved]
  - Pallor [Recovered/Resolved]
  - Infusion site pruritus [Recovered/Resolved]
  - Pruritus [Recovered/Resolved]
  - Cyanosis [Recovered/Resolved]

NARRATIVE: CASE EVENT DATE: 20090401
